FAERS Safety Report 5159753-X (Version None)
Quarter: 2006Q4

REPORT INFORMATION
  Report Type: 
  Country: None (occurrence: None)
  Receive Date: 20061129
  Receipt Date: 20051102
  Transmission Date: 20070319
  Serious: No
  Sender: FDA-Public Use
  Company Number: 2005-03496

PATIENT
  Age: 59 Year
  Sex: Female
  Weight: 66.4 kg

DRUGS (6)
  1. WELLBUTRIN SR [Suspect]
     Indication: DEPRESSION
     Route: 048
     Dates: start: 20040101
  2. OXYBUTYNIN [Suspect]
     Dosage: 3.9MG TWO TIMES PER WEEK
     Route: 062
     Dates: start: 20030901
  3. AVAPRO [Suspect]
     Indication: HYPERTENSION
     Route: 048
     Dates: start: 20040101
  4. EVISTA [Suspect]
     Indication: DRUG USE FOR UNKNOWN INDICATION
     Route: 048
     Dates: start: 20010101
  5. NITROFURANTOIN [Suspect]
     Indication: INFECTION
     Dosage: 50MG PER DAY
     Route: 048
  6. LIPITOR [Suspect]

REACTIONS (1)
  - ALOPECIA [None]
